FAERS Safety Report 9426059 (Version 1)
Quarter: 2013Q3

REPORT INFORMATION
  Report Type: Spontaneous
  Country: GB (occurrence: GB)
  Receive Date: 20130730
  Receipt Date: 20130730
  Transmission Date: 20140515
  Serious: Yes (Other)
  Sender: FDA-Public Use
  Company Number: GB-ROCHE-1253276

PATIENT
  Age: 76 Year
  Sex: Female

DRUGS (17)
  1. VALCYTE [Suspect]
     Indication: CYTOMEGALOVIRUS COLITIS
     Route: 048
     Dates: start: 20130621, end: 20130705
  2. ADCAL-D3 [Concomitant]
  3. ATENOLOL [Concomitant]
  4. ENOXAPARIN SODIUM [Concomitant]
  5. GANCICLOVIR SODIUM [Concomitant]
     Route: 065
  6. HYDROCORTISONE [Concomitant]
  7. METRONIDAZOLE [Concomitant]
  8. MEZAVANT [Concomitant]
  9. NYSTATIN [Concomitant]
  10. OMEPRAZOLE [Concomitant]
  11. PARACETAMOL [Concomitant]
  12. CALCIUM CARBONATE [Concomitant]
  13. SODIUM ALGINATE [Concomitant]
  14. SODIUM BICARBONATE [Concomitant]
  15. PREDNISOLONE [Concomitant]
  16. SANATOGEN [Concomitant]
  17. SANDO-K [Concomitant]

REACTIONS (3)
  - Dizziness [Recovered/Resolved]
  - Eye pain [Recovered/Resolved]
  - Vitreous floaters [Recovering/Resolving]
